FAERS Safety Report 5776140-1 (Version None)
Quarter: 2008Q2

REPORT INFORMATION
  Report Type: 
  Country: None (occurrence: None)
  Receive Date: 20080613
  Receipt Date: 20080528
  Transmission Date: 20081010
  Serious: Yes (Hospitalization)
  Sender: FDA-Public Use
  Company Number: DSA_31940_2008

PATIENT
  Sex: Female

DRUGS (2)
  1. TAVOR /00273201/ (TAVOR - LORAZEPAM) (NOT SPECIFED) [Suspect]
     Dosage: ORAL
     Route: 048
     Dates: start: 20080528, end: 20080528
  2. HERBICIDE FOR SYSTEMIC APPLICATION (GLYPHOSATE) [Suspect]
     Dosage: ORAL
     Route: 048
     Dates: start: 20080528, end: 20080528

REACTIONS (3)
  - MULTIPLE DRUG OVERDOSE INTENTIONAL [None]
  - OESOPHAGITIS CHEMICAL [None]
  - SUICIDE ATTEMPT [None]
